FAERS Safety Report 10264467 (Version 1)
Quarter: 2014Q2

REPORT INFORMATION
  Report Type: Spontaneous
  Country: US (occurrence: None)
  Receive Date: 20140624
  Receipt Date: 20140624
  Transmission Date: 20141212
  Serious: Yes (Other)
  Sender: FDA-Public Use
  Company Number: AUR-APL-2014-06554

PATIENT
  Age: 66 Year
  Sex: Female

DRUGS (2)
  1. PAROXETINE [Suspect]
     Indication: DEPRESSION
  2. CYCLOBENZAPRINE [Suspect]
     Indication: MUSCLE SPASMS

REACTIONS (3)
  - Stress cardiomyopathy [None]
  - Transient global amnesia [None]
  - Drug interaction [None]
